FAERS Safety Report 4960536-1 (Version None)
Quarter: 2006Q1

REPORT INFORMATION
  Report Type: 
  Country: None (occurrence: None)
  Receive Date: 20060331
  Receipt Date: 20060331
  Transmission Date: 20060701
  Serious: Yes (Life-Threatening, Hospitalization)
  Sender: FDA-Public Use
  Company Number: None

PATIENT
  Age: 71 Year
  Sex: Female
  Weight: 87.0906 kg

DRUGS (2)
  1. MYLOTARG [Suspect]
     Indication: ACUTE MYELOID LEUKAEMIA
     Dosage: 6.6      TWICE 5/13 + 5/20    IV DRIP
     Route: 041
     Dates: start: 20050513
  2. MYLOTARG [Suspect]
     Indication: ACUTE MYELOID LEUKAEMIA
     Dosage: 6.6      TWICE 5/13 + 5/20    IV DRIP
     Route: 041
     Dates: start: 20050520

REACTIONS (3)
  - BLOOD BILIRUBIN INCREASED [None]
  - DYSPNOEA [None]
  - WEIGHT INCREASED [None]
